FAERS Safety Report 4950096-3 (Version None)
Quarter: 2006Q1

REPORT INFORMATION
  Report Type: 
  Country: None (occurrence: None)
  Receive Date: 20060315
  Receipt Date: 20060228
  Transmission Date: 20060701
  Serious: Yes (Death, Life-Threatening, Hospitalization)
  Sender: FDA-Public Use
  Company Number: DEU-2005-0001650

PATIENT
  Age: 15 Year
  Sex: Female

DRUGS (8)
  1. MORPHINE SULFATE [Suspect]
     Indication: DRUG ABUSER
     Dosage: SINGLE, INTRAVENOUS
     Route: 042
     Dates: start: 20040906, end: 20040906
  2. MORPHINE SULFATE [Suspect]
     Indication: DRUG ABUSER
     Dosage: SINGLE, INTRAVENOUS
     Route: 042
     Dates: start: 20040914, end: 20040914
  3. OXAZEPAM [Suspect]
     Indication: DRUG ABUSER
     Dosage: SEE IMAGE
     Dates: start: 20040911, end: 20040911
  4. OXAZEPAM [Suspect]
     Indication: DRUG ABUSER
     Dosage: SEE IMAGE
     Dates: start: 20040912, end: 20040913
  5. SOMNUBENE (FLUNITRAZEPAM) [Suspect]
     Indication: DRUG ABUSER
     Dosage: 4 TABLET, DAILY
     Dates: start: 20040910, end: 20040910
  6. COCAINE (COCAINE) [Suspect]
     Indication: DRUG ABUSER
  7. CANNABIS (CANNABIS) [Concomitant]
  8. ALCOHOL [Concomitant]

REACTIONS (10)
  - CARDIAC FAILURE [None]
  - CIRCULATORY COLLAPSE [None]
  - DRUG ABUSER [None]
  - DRUG TOXICITY [None]
  - INCORRECT ROUTE OF DRUG ADMINISTRATION [None]
  - INTENTIONAL DRUG MISUSE [None]
  - LOSS OF CONSCIOUSNESS [None]
  - MULTIPLE DRUG OVERDOSE [None]
  - RESPIRATORY PARALYSIS [None]
  - VICTIM OF HOMICIDE [None]
